FAERS Safety Report 15206850 (Version 1)
Quarter: 2018Q3

REPORT INFORMATION
  Report Type: Spontaneous
  Country: GB (occurrence: GB)
  Receive Date: 20180727
  Receipt Date: 20180727
  Transmission Date: 20181010
  Serious: Yes (Other)
  Sender: FDA-Public Use
  Company Number: GB-TEVA-2018-GB-930949

PATIENT
  Age: 68 Year
  Sex: Female
  Weight: 74 kg

DRUGS (14)
  1. ATORVASTATIN [Concomitant]
     Active Substance: ATORVASTATIN
     Dosage: 1 DOSAGE FORMS DAILY; EVERY NIGHT
     Dates: start: 20150224
  2. PREGABALIN. [Concomitant]
     Active Substance: PREGABALIN
     Dosage: INCREASING AS DISCUSSED EVERY DAY
     Dates: start: 20180427
  3. FLUTICASONE PROPIONATE. [Concomitant]
     Active Substance: FLUTICASONE PROPIONATE
     Dosage: 2 DOSAGE FORMS DAILY;
     Route: 055
     Dates: start: 20020121
  4. THEICAL?D3 [Concomitant]
     Dosage: 1 DOSAGE FORMS DAILY;
     Dates: start: 20180406
  5. PENTASA [Concomitant]
     Active Substance: MESALAMINE
     Dosage: 2 DOSAGE FORMS DAILY; TAKE ONE IN THE MORNING AND ONE AT NIGHT
     Dates: start: 20170302
  6. LANSOPRAZOLE. [Concomitant]
     Active Substance: LANSOPRAZOLE
     Dosage: 1 DOSAGE FORMS DAILY; MORNING
     Dates: start: 20120913
  7. COSMOCOL [Concomitant]
     Dosage: TAKE ONE OR TWO A DAY WHEN REQUIRED
     Dates: start: 20170216
  8. ZAPAIN [Concomitant]
     Active Substance: ACETAMINOPHEN\CODEINE PHOSPHATE
     Dosage: TAKE 1 OR 2 4 TIMES/DAY
     Dates: start: 20180515
  9. VENTOLIN [Concomitant]
     Active Substance: ALBUTEROL SULFATE
     Route: 055
     Dates: start: 20070509
  10. AMLODIPINE [Concomitant]
     Active Substance: AMLODIPINE BESYLATE
     Dosage: 1 DOSAGE FORMS DAILY; MORNING
     Dates: start: 20140903
  11. LEVOTHYROXINE. [Concomitant]
     Active Substance: LEVOTHYROXINE
     Dosage: 1 DOSAGE FORMS DAILY;
     Dates: start: 20160408
  12. COCODAMOL [Suspect]
     Active Substance: ACETAMINOPHEN\CODEINE PHOSPHATE
     Indication: PAIN IN EXTREMITY
     Route: 065
     Dates: start: 20180601
  13. CODEINE PHOSPHATE [Concomitant]
     Active Substance: CODEINE PHOSPHATE
     Dosage: 4 DOSAGE FORMS DAILY;
     Dates: start: 20171121, end: 20180515
  14. AMITRIPTYLINE HYDROCHLORIDE. [Concomitant]
     Active Substance: AMITRIPTYLINE HYDROCHLORIDE
     Dosage: DISCUSSED REDUCING DOSE OVER 4 WEEKS
     Dates: start: 20160128, end: 20180511

REACTIONS (2)
  - Pain [Recovered/Resolved]
  - Nausea [Recovered/Resolved]

NARRATIVE: CASE EVENT DATE: 20180601
